FAERS Safety Report 4617928-X (Version None)
Quarter: 2005Q1

REPORT INFORMATION
  Report Type: 
  Country: None (occurrence: None)
  Receive Date: 20050324
  Receipt Date: 20050214
  Transmission Date: 20050727
  Serious: Yes (Hospitalization)
  Sender: FDA-Public Use
  Company Number: PHRM2005FR00882

PATIENT
  Age: 52 Year
  Sex: Female
  Weight: 48 kg

DRUGS (8)
  1. TAZOCILLINE [Concomitant]
     Indication: SEPSIS
     Dosage: 12 G
     Route: 042
     Dates: start: 20050110
  2. VANCOMYCIN [Concomitant]
     Indication: SEPSIS
     Dosage: 1.5 G
     Route: 042
     Dates: start: 20050110
  3. METHOTREXATE [Concomitant]
     Route: 037
     Dates: end: 20050124
  4. TPN [Concomitant]
     Indication: ENTERAL NUTRITION
     Dosage: 1000 CC
     Route: 042
  5. DEXAMETHASONE [Concomitant]
     Indication: ACUTE LYMPHOCYTIC LEUKAEMIA
  6. VINCRISTINE [Concomitant]
     Indication: ACUTE LYMPHOCYTIC LEUKAEMIA
  7. GLEEVEC [Suspect]
     Indication: ACUTE LYMPHOCYTIC LEUKAEMIA
     Dosage: 800 MG DAILY
     Route: 048
     Dates: start: 20050110, end: 20050128
  8. OMEPRAZOLE [Concomitant]
     Route: 042
     Dates: start: 20050110

REACTIONS (2)
  - SPEECH DISORDER [None]
  - TREMOR [None]
